FAERS Safety Report 9121235 (Version 1)
Quarter: 2013Q1

REPORT INFORMATION
  Report Type: Spontaneous
  Country: US (occurrence: US)
  Receive Date: 20130225
  Receipt Date: 20130225
  Transmission Date: 20140127
  Serious: Yes (Other)
  Sender: FDA-Public Use
  Company Number: US-ROCHE-1192924

PATIENT
  Sex: 0

DRUGS (2)
  1. ZELBORAF [Suspect]
     Indication: MALIGNANT MELANOMA
     Route: 048
  2. ZELBORAF [Suspect]
     Route: 065

REACTIONS (2)
  - Nephropathy toxic [Not Recovered/Not Resolved]
  - Blood creatinine increased [Not Recovered/Not Resolved]
